FAERS Safety Report 7645971-5 (Version None)
Quarter: 2011Q3

REPORT INFORMATION
  Report Type: 
  Country: None (occurrence: None)
  Receive Date: 20110729
  Receipt Date: 20110714
  Transmission Date: 20111222
  Serious: Yes (Death)
  Sender: FDA-Public Use
  Company Number: CA-ASTRAZENECA-2011SE42097

PATIENT
  Age: 82 Year
  Sex: Male

DRUGS (1)
  1. VIMOVO [Suspect]
     Dosage: 500 MG/20 MG DAILY
     Route: 048
     Dates: start: 20110601

REACTIONS (1)
  - CEREBROVASCULAR ACCIDENT [None]
